FAERS Safety Report 7283711-2 (Version None)
Quarter: 2011Q1

REPORT INFORMATION
  Report Type: 
  Country: None (occurrence: None)
  Receive Date: 20110126
  Receipt Date: 20110120
  Transmission Date: 20110831
  Serious: Yes (Other)
  Sender: FDA-Public Use
  Company Number: WAES 1101USA02087

PATIENT
  Age: 44 Year
  Sex: Female

DRUGS (4)
  1. DASATINIB [Suspect]
     Indication: BREAST CANCER METASTATIC
     Dosage: DAILY/PO
     Route: 048
     Dates: start: 20100804
  2. TAXOL [Suspect]
     Indication: BREAST CANCER METASTATIC
     Dosage: (IV) (IV)
     Route: 042
     Dates: start: 20100804
  3. TAXOL [Suspect]
     Indication: BREAST CANCER METASTATIC
     Dosage: (IV) (IV)
     Route: 042
     Dates: start: 20100804
  4. DECADRON [Suspect]
     Indication: PREMEDICATION
     Dosage: PO
     Route: 048

REACTIONS (1)
  - SYNCOPE [None]
